FAERS Safety Report 5035611-6 (Version None)
Quarter: 2006Q2

REPORT INFORMATION
  Report Type: 
  Country: None (occurrence: None)
  Receive Date: 20060627
  Receipt Date: 20060623
  Transmission Date: 20061013
  Serious: Yes (Other)
  Sender: FDA-Public Use
  Company Number: US-GLAXOSMITHKLINE-A0610162A

PATIENT
  Age: 77 Year
  Sex: Male

DRUGS (7)
  1. AVANDARYL [Suspect]
     Dosage: 1TAB PER DAY
     Route: 048
     Dates: start: 20060501
  2. WELLBUTRIN XL [Concomitant]
  3. BUMETANIDE [Concomitant]
  4. BETAPACE [Concomitant]
  5. NORVASC [Concomitant]
  6. WARFARIN SODIUM [Concomitant]
  7. LIPITOR [Concomitant]

REACTIONS (3)
  - DRUG INEFFECTIVE [None]
  - HYPOGLYCAEMIA [None]
  - NIGHT SWEATS [None]
